FAERS Safety Report 6937602-4 (Version None)
Quarter: 2010Q3

REPORT INFORMATION
  Report Type: 
  Country: None (occurrence: None)
  Receive Date: 20100823
  Receipt Date: 20100823
  Transmission Date: 20110219
  Serious: Yes (Other)
  Sender: FDA-Public Use
  Company Number: None

PATIENT
  Sex: Female
  Weight: 54.4316 kg

DRUGS (3)
  1. SEROQUEL [Suspect]
     Indication: AFFECTIVE DISORDER
     Dosage: 300 MG AT BEDTIME MOUTH
     Route: 048
     Dates: start: 20070201, end: 20080101
  2. SEROQUEL [Suspect]
     Indication: BIPOLAR DISORDER
     Dosage: 300 MG AT BEDTIME MOUTH
     Route: 048
     Dates: start: 20070201, end: 20080101
  3. CHANTIX [Suspect]
     Indication: INSOMNIA
     Dosage: 1 MG / 0.5 MG DAILY (2) MOUTH
     Route: 048
     Dates: start: 20100101

REACTIONS (15)
  - BIPOLAR I DISORDER [None]
  - BLOOD DISORDER [None]
  - CHOLECYSTOSTOMY [None]
  - DRUG HYPERSENSITIVITY [None]
  - FEELING HOT [None]
  - HALLUCINATION, VISUAL [None]
  - LEGAL PROBLEM [None]
  - LOSS OF EMPLOYMENT [None]
  - MALAISE [None]
  - PAIN [None]
  - PARANOIA [None]
  - SLEEP DISORDER [None]
  - THROMBOSIS [None]
  - TONGUE DISORDER [None]
  - WEIGHT DECREASED [None]
